FAERS Safety Report 23989338 (Version 3)
Quarter: 2024Q3

REPORT INFORMATION
  Report Type: Spontaneous
  Country: CN (occurrence: CN)
  Receive Date: 20240619
  Receipt Date: 20240702
  Transmission Date: 20241016
  Serious: Yes (Death)
  Sender: BAYER
  Company Number: CN-BAYER-2024A088072

PATIENT
  Age: 67 Year

DRUGS (1)
  1. STIVARGA [Suspect]
     Active Substance: REGORAFENIB MONOHYDRATE
     Dosage: UNK
     Route: 048
     Dates: start: 202406, end: 202406

REACTIONS (2)
  - Death [Fatal]
  - Adverse drug reaction [None]

NARRATIVE: CASE EVENT DATE: 20240601
